FAERS Safety Report 6018722-8 (Version None)
Quarter: 2008Q4

REPORT INFORMATION
  Report Type: 
  Country: None (occurrence: None)
  Receive Date: 20081222
  Receipt Date: 20081209
  Transmission Date: 20090506
  Serious: Yes (Hospitalization)
  Sender: FDA-Public Use
  Company Number: 232818K08USA

PATIENT
  Age: 44 Year
  Sex: Female
  Weight: 84 kg

DRUGS (5)
  1. REBIF [Suspect]
     Indication: MULTIPLE SCLEROSIS
     Dosage: 44 MCG, 3 IN 1 WEEKS, SUBCUTANEOUS
     Route: 058
     Dates: start: 20030310
  2. PNEUMONIA SHOT (PNEUMOCOCCAL VACCINE) [Suspect]
     Dates: start: 20081119
  3. PROZAC [Concomitant]
  4. BACLOFEN [Concomitant]
  5. DETROL [Concomitant]

REACTIONS (4)
  - DEHYDRATION [None]
  - DIPLEGIA [None]
  - PAIN IN EXTREMITY [None]
  - URINARY TRACT INFECTION [None]
